FAERS Safety Report 5264995-9 (Version None)
Quarter: 2007Q1

REPORT INFORMATION
  Report Type: 
  Country: None (occurrence: None)
  Receive Date: 20061122
  Receipt Date: 20060908
  Transmission Date: 20070707
  Serious: Yes (Other)
  Sender: FDA-Public Use
  Company Number: US-JNJFOC-20060803256

PATIENT
  Age: 61 Year
  Sex: Female
  Weight: 75.2971 kg

DRUGS (13)
  1. RISPERDAL CONSTA [Suspect]
     Indication: PARANOIA
     Dosage: 50 MG, 1 IN 2 WEEK, INTRAMUSCULAR
     Route: 030
     Dates: start: 20060516, end: 20060613
  2. RISPERDAL CONSTA [Suspect]
     Indication: SCHIZOPHRENIA
     Dosage: 50 MG, 1 IN 2 WEEK, INTRAMUSCULAR
     Route: 030
     Dates: start: 20060516, end: 20060613
  3. RISPERDAL [Suspect]
     Indication: PARANOIA
     Dosage: 2 MG, 2 IN 1 DAY, ORAL
     Route: 048
     Dates: end: 20060623
  4. RISPERDAL [Suspect]
     Indication: SCHIZOPHRENIA
     Dosage: 2 MG, 2 IN 1 DAY, ORAL
     Route: 048
     Dates: end: 20060623
  5. PROTONIX [Concomitant]
  6. DIPHENHYDRAMINE HCL [Concomitant]
  7. ALBUTEROL INHALER (SALBUTAMOL) INHALATION [Concomitant]
  8. COMBIVENT (COMBIVENT) INHALATION [Concomitant]
  9. ALBUTEROL NEBULIZER (SALBUTAMOL) INHALATION [Concomitant]
  10. LAMOTRIGINE (LAMOTRIGINE) UNSPECIFIED [Concomitant]
  11. CHLORPROMAZINE (CHLORPROMAZINE) UNSPECIFIED [Concomitant]
  12. SERTRALINE [Concomitant]
  13. PERPHENAZINE (PERPHENAZINE) UNSPECIFIED [Concomitant]

REACTIONS (3)
  - DECREASED APPETITE [None]
  - INSOMNIA [None]
  - PSYCHOTIC DISORDER [None]
